FAERS Safety Report 6901457-4 (Version None)
Quarter: 2010Q3

REPORT INFORMATION
  Report Type: 
  Country: None (occurrence: None)
  Receive Date: 20100803
  Receipt Date: 20080204
  Transmission Date: 20110219
  Serious: Yes (Other)
  Sender: FDA-Public Use
  Company Number: US-PFIZER INC-2008012455

PATIENT
  Sex: Female

DRUGS (2)
  1. LYRICA [Suspect]
     Indication: HERPES ZOSTER
     Dates: start: 20070101
  2. TYLENOL [Concomitant]

REACTIONS (7)
  - CRYING [None]
  - DRUG INEFFECTIVE [None]
  - INCREASED APPETITE [None]
  - PAIN [None]
  - SWELLING [None]
  - SWELLING FACE [None]
  - VISION BLURRED [None]
